FAERS Safety Report 13578090 (Version 3)
Quarter: 2017Q4

REPORT INFORMATION
  Report Type: Spontaneous
  Country: None (occurrence: US)
  Receive Date: 20170524
  Receipt Date: 20171025
  Transmission Date: 20180320
  Serious: No
  Sender: FDA-Public Use
  Company Number: US-MATRIXX INITIATIVES, INC.-2021180

PATIENT
  Age: 56 Year
  Sex: Female
  Weight: 93.18 kg

DRUGS (1)
  1. ZICAM COLD REMEDY NASAL SPRAY [Suspect]
     Active Substance: HOMEOPATHICS
     Indication: NASOPHARYNGITIS
     Route: 045

REACTIONS (3)
  - Ageusia [Recovered/Resolved]
  - Anosmia [Not Recovered/Not Resolved]
  - Nasal discomfort [Recovered/Resolved]
